FAERS Safety Report 6987676-X (Version None)
Quarter: 2010Q3

REPORT INFORMATION
  Report Type: 
  Country: None (occurrence: None)
  Receive Date: 20100916
  Receipt Date: 20100910
  Transmission Date: 20110219
  Serious: Yes (Death, Life-Threatening, Hospitalization)
  Sender: FDA-Public Use
  Company Number: FR-CELGENEUS-056-21880-10070811

PATIENT
  Sex: Male
  Weight: 61.8 kg

DRUGS (6)
  1. REVLIMID [Suspect]
     Route: 048
     Dates: start: 20100617, end: 20100630
  2. REVLIMID [Suspect]
     Route: 048
     Dates: start: 20100517
  3. VIDAZA [Suspect]
     Route: 051
     Dates: start: 20100617, end: 20100621
  4. VIDAZA [Suspect]
     Route: 051
     Dates: start: 20100517
  5. LEVOFLOXACIN [Concomitant]
     Indication: INFECTION PROPHYLAXIS
     Route: 048
     Dates: start: 20100628, end: 20100710
  6. POSACONAZOLE [Concomitant]
     Indication: PROPHYLAXIS
     Route: 048
     Dates: start: 20100628

REACTIONS (4)
  - HAEMODYNAMIC INSTABILITY [None]
  - NEUTROPENIA [None]
  - PNEUMONIA [None]
  - SEPSIS [None]
